FAERS Safety Report 8345246-5 (Version None)
Quarter: 2012Q2

REPORT INFORMATION
  Report Type: 
  Country: None (occurrence: None)
  Receive Date: 20120508
  Receipt Date: 20120426
  Transmission Date: 20120825
  Serious: Yes (Other)
  Sender: FDA-Public Use
  Company Number: US-BAYER-2011-080167

PATIENT
  Sex: Male

DRUGS (1)
  1. ALKA-SELTZER (UNKNOWN FORMULATION) [Suspect]
     Indication: DYSPEPSIA
     Dosage: 6 U, UNK
     Route: 048
     Dates: start: 20110405

REACTIONS (1)
  - MYOCARDIAL INFARCTION [None]
